FAERS Safety Report 8814718 (Version 1)
Quarter: 2012Q4

REPORT INFORMATION
  Report Type: 
  Country: IT (occurrence: IT)
  Receive Date: 20120928
  Receipt Date: 20120928
  Transmission Date: 20130627
  Serious: Yes (Hospitalization)
  Sender: FDA-Public Use
  Company Number: IT-TEVA-359829ISR

PATIENT
  Age: 72 Year
  Sex: Female

DRUGS (8)
  1. DOXORUBICINA TEVA [Suspect]
     Indication: LEIOMYOSARCOMA METASTATIC
     Dosage: 95 Milligram Daily;
     Route: 042
     Dates: start: 20120313, end: 20120413
  2. HOLOXAN [Suspect]
     Indication: LEIOMYOSARCOMA METASTATIC
     Dosage: 4 Milligram Daily;
     Route: 042
     Dates: start: 20120313, end: 20120413
  3. UROMITEXAN [Concomitant]
     Indication: LEIOMYOSARCOMA METASTATIC
     Dosage: 8 Gram Daily;
     Route: 042
     Dates: start: 20120313, end: 20120413
  4. ATENOLOLO [Concomitant]
     Dosage: 50 Milligram Daily;
     Dates: start: 20110905, end: 20120803
  5. ALOXI [Concomitant]
     Route: 042
     Dates: start: 20120313, end: 20120413
  6. DESAMETASONE FOSFATO HOSPIRA [Concomitant]
     Dosage: 8 Milligram Daily;
     Route: 042
     Dates: start: 20120313, end: 20120413
  7. NEULASTA [Concomitant]
     Dosage: 6 Milligram Daily;
     Route: 058
     Dates: start: 20120316, end: 20120414
  8. METFORMINA [Concomitant]
     Dosage: 500 Milligram Daily;
     Route: 048
     Dates: start: 20110905, end: 20120803

REACTIONS (7)
  - Anaemia [Recovered/Resolved]
  - Asthenia [Recovered/Resolved]
  - Febrile neutropenia [Recovered/Resolved]
  - Hypokalaemia [Recovered/Resolved]
  - Renal failure acute [Recovered/Resolved]
  - Septic shock [Recovered/Resolved]
  - Thrombocytopenia [Recovered/Resolved]
